FAERS Safety Report 9301681 (Version 1)
Quarter: 2013Q2

REPORT INFORMATION
  Report Type: Spontaneous
  Country: NL (occurrence: NL)
  Receive Date: 20130521
  Receipt Date: 20130521
  Transmission Date: 20140414
  Serious: Yes (Other)
  Sender: FDA-Public Use
  Company Number: NL-MYLANLABS-2013S1010283

PATIENT
  Age: 72 Year
  Sex: Female

DRUGS (2)
  1. PRAVASTATIN [Suspect]
     Route: 065
  2. WARFARIN [Concomitant]
     Route: 065
     Dates: start: 200902

REACTIONS (3)
  - Fat embolism [Recovering/Resolving]
  - Blue toe syndrome [Recovering/Resolving]
  - Gastrointestinal disorder [Unknown]
